FAERS Safety Report 9850527 (Version 1)
Quarter: 2013Q4

REPORT INFORMATION
  Report Type: Spontaneous
  Country: US (occurrence: None)
  Receive Date: 20131226
  Receipt Date: 20131226
  Transmission Date: 20140711
  Serious: Yes (Life-Threatening)
  Sender: FDA-Public Use
  Company Number: PHEH2013US007309

PATIENT
  Age: 64 Year
  Sex: Female

DRUGS (1)
  1. MIACALCIN [Suspect]
     Indication: RHEUMATOID ARTHRITIS
     Route: 058
     Dates: start: 20130327

REACTIONS (8)
  - Nausea [None]
  - Diarrhoea [None]
  - Arthralgia [None]
  - Feeling cold [None]
  - Feeling hot [None]
  - Pain [None]
  - Pyrexia [None]
  - Anaphylactic shock [None]
